FAERS Safety Report 6920064 (Version 2)
Quarter: 2013Q2

REPORT INFORMATION
  Report Type: Spontaneous
  Country: ES (occurrence: None)
  Receive Date: 20090213
  Receipt Date: 20130430
  Transmission Date: 20140414
  Serious: Yes (Hospitalization)
  Sender: FDA-Public Use
  Company Number: 2009000282

PATIENT
  Age: 74 Year
  Sex: Female
  Weight: 54 kg

DRUGS (11)
  1. TARCEVA (ERLOTINIB HYDROCHLORIDE) TABLET [Suspect]
     Indication: NON-SMALL CELL LUNG CANCER
     Dosage: UID/QD
     Route: 048
     Dates: start: 20080314, end: 20090112
  2. DURAGESIC [Suspect]
     Indication: PRODUCT USED FOR UNKNOWN INDICATION
  3. ARICEPT [Concomitant]
  4. NEURONTIN [Concomitant]
  5. PANTECTA (PANTOPRAZOLE SODIUM) [Concomitant]
  6. DIOSMIN [Concomitant]
  7. ZARATOR /0136102/ (ATORVASTATIN CALCIUM) [Concomitant]
  8. ACTONEL [Concomitant]
  9. SERETIDE (FLUTICASONE PROPIONATE, SALMETEROL XINAFOATE) [Concomitant]
  10. DISNAL (CALCIUM CARBONATE, COLECALICIFEROL) [Concomitant]
  11. EBIXA (MEMANTINE HYDROCHLORIDE) [Concomitant]

REACTIONS (1)
  - INTESTINAL OBSTRUCTION [None]
